FAERS Safety Report 4900757-7 (Version None)
Quarter: 2006Q1

REPORT INFORMATION
  Report Type: 
  Country: None (occurrence: None)
  Receive Date: 20060201
  Receipt Date: 20060117
  Transmission Date: 20060701
  Serious: Yes (Death, Life-Threatening, Hospitalization)
  Sender: FDA-Public Use
  Company Number: FR200601002535

PATIENT
  Age: 63 Year
  Sex: Male

DRUGS (1)
  1. PROZAC [Suspect]

REACTIONS (5)
  - CARDIAC ARREST [None]
  - COMA [None]
  - CYANOSIS [None]
  - FEELING DRUNK [None]
  - LOSS OF CONSCIOUSNESS [None]
